FAERS Safety Report 4698261-7 (Version None)
Quarter: 2005Q2

REPORT INFORMATION
  Report Type: 
  Country: None (occurrence: None)
  Receive Date: 20050621
  Receipt Date: 20050614
  Transmission Date: 20051028
  Serious: Yes (Hospitalization)
  Sender: FDA-Public Use
  Company Number: CIP05001411

PATIENT
  Age: 79 Year
  Sex: Female

DRUGS (3)
  1. ACTONEL [Suspect]
     Dosage: 35 MG ONCE WEEKLY, ORAL
     Route: 048
     Dates: start: 20041201
  2. .. [Concomitant]
  3. .. [Concomitant]

REACTIONS (2)
  - GASTRIC DISORDER [None]
  - WHITE BLOOD CELL COUNT INCREASED [None]
